FAERS Safety Report 8237396-9 (Version None)
Quarter: 2012Q1

REPORT INFORMATION
  Report Type: 
  Country: None (occurrence: None)
  Receive Date: 20120327
  Receipt Date: 20120315
  Transmission Date: 20120608
  Serious: Yes (Hospitalization, Other)
  Sender: FDA-Public Use
  Company Number: DE-ELI_LILLY_AND_COMPANY-DE201203004644

PATIENT
  Sex: Male

DRUGS (4)
  1. DEXAMETHASONE SODIUM PHOSPHATE [Concomitant]
     Dosage: UNK, UNKNOWN
  2. ALIMTA [Suspect]
     Dosage: 500 MG, UNK
     Dates: start: 20120305
  3. ALIMTA [Suspect]
     Indication: ADENOCARCINOMA
     Dosage: 500 MG, UNKNOWN
     Dates: start: 20120213
  4. FOLIC ACID [Concomitant]
     Dosage: UNK, UNKNOWN

REACTIONS (3)
  - INFECTION [None]
  - PANCYTOPENIA [None]
  - GASTRIC ULCER HAEMORRHAGE [None]
